FAERS Safety Report 4473922-3 (Version None)
Quarter: 2004Q4

REPORT INFORMATION
  Report Type: 
  Country: None (occurrence: None)
  Receive Date: 20041008
  Receipt Date: 20040915
  Transmission Date: 20050328
  Serious: Yes (Hospitalization)
  Sender: FDA-Public Use
  Company Number: USA040978503

PATIENT
  Sex: Male

DRUGS (2)
  1. CYMBALTA [Suspect]
     Dosage: 60 MG/1 DAY
  2. ZOLOFT [Concomitant]

REACTIONS (2)
  - DELUSION [None]
  - PSYCHOTIC DISORDER [None]
